FAERS Safety Report 20875401 (Version 4)
Quarter: 2024Q3

REPORT INFORMATION
  Report Type: Spontaneous
  Country: CA (occurrence: CA)
  Receive Date: 20220526
  Receipt Date: 20240819
  Transmission Date: 20241016
  Serious: Yes (Other)
  Sender: CELLTRION
  Company Number: CA-CELLTRION INC.-2022CA006852

PATIENT

DRUGS (1)
  1. INFLECTRA [Suspect]
     Active Substance: INFLIXIMAB-DYYB
     Indication: Ankylosing spondylitis
     Dosage: 600 MG AT 0,2,6 THEN EVERY 8 WEEKS (MAINTENANCE 6-8 WEEKS OK AS PER MD)
     Route: 042
     Dates: start: 20191112, end: 20221026

REACTIONS (2)
  - Schwannoma [Unknown]
  - COVID-19 [Unknown]

NARRATIVE: CASE EVENT DATE: 20220225
